FAERS Safety Report 7803614-1 (Version None)
Quarter: 2011Q4

REPORT INFORMATION
  Report Type: 
  Country: None (occurrence: None)
  Receive Date: 20111010
  Receipt Date: 20111005
  Transmission Date: 20120403
  Serious: Yes (Hospitalization)
  Sender: FDA-Public Use
  Company Number: CA-AMGEN-CANSP2011048741

PATIENT
  Age: 54 Year
  Sex: Female
  Weight: 63 kg

DRUGS (7)
  1. CARBAMAZEPINE [Concomitant]
     Indication: CONVULSION
     Dosage: 40 MG, QD
     Route: 048
  2. REACTINE                           /00884302/ [Concomitant]
     Indication: HYPERSENSITIVITY
     Dosage: 10 MG, QD
     Route: 048
  3. AZATHIOPRINE [Concomitant]
  4. CRESTOR [Concomitant]
     Indication: BLOOD CHOLESTEROL INCREASED
     Dosage: 10 MG, QD
     Route: 048
  5. ARANESP [Suspect]
     Indication: TRANSPLANT FAILURE
     Dosage: 200 MUG, 2 TIMES/WK
     Route: 058
     Dates: start: 20090101
  6. VITAMIN B COMPLEX CAP [Concomitant]
     Route: 048
  7. VITAMIN C                          /00008001/ [Concomitant]
     Route: 048

REACTIONS (1)
  - APLASIA PURE RED CELL [None]
